FAERS Safety Report 8609841-8 (Version None)
Quarter: 2012Q3

REPORT INFORMATION
  Report Type: 
  Country: None (occurrence: None)
  Receive Date: 20120821
  Receipt Date: 20120813
  Transmission Date: 20120928
  Serious: Yes (Other)
  Sender: FDA-Public Use
  Company Number: PHHY2012US069992

PATIENT

DRUGS (2)
  1. ASPIRIN [Suspect]
     Indication: ANTICOAGULANT THERAPY
     Dosage: 6 DF, UNK
     Route: 048
  2. ASPIRIN [Suspect]
     Dosage: 0.5 DF, DAILY DOSE
     Route: 048

REACTIONS (3)
  - THROMBOSIS [None]
  - PHLEBITIS [None]
  - WRONG TECHNIQUE IN DRUG USAGE PROCESS [None]
